FAERS Safety Report 7277458-6 (Version None)
Quarter: 2011Q1

REPORT INFORMATION
  Report Type: 
  Country: None (occurrence: None)
  Receive Date: 20110207
  Receipt Date: 20110201
  Transmission Date: 20110831
  Serious: Yes (Hospitalization)
  Sender: FDA-Public Use
  Company Number: US-BRISTOL-MYERS SQUIBB COMPANY-15522832

PATIENT
  Age: 61 Year
  Sex: Female
  Weight: 60 kg

DRUGS (7)
  1. OMEPRAZOLE [Concomitant]
  2. PRAVACHOL [Concomitant]
  3. GLUCOPHAGE [Suspect]
  4. GLIPIZIDE [Suspect]
  5. CISPLATIN [Suspect]
     Indication: CERVIX CARCINOMA
     Dates: start: 20110124
  6. ERBITUX [Suspect]
     Indication: CERVIX CARCINOMA
     Dates: start: 20110124
  7. LISINOPRIL [Concomitant]

REACTIONS (3)
  - DIARRHOEA [None]
  - HYPOKALAEMIA [None]
  - GRANULOCYTE COUNT DECREASED [None]
